FAERS Safety Report 23747761 (Version 2)
Quarter: 2024Q2

REPORT INFORMATION
  Report Type: Spontaneous
  Country: CA (occurrence: CA)
  Receive Date: 20240416
  Receipt Date: 20240610
  Transmission Date: 20240715
  Serious: Yes (Other)
  Sender: FDA-Public Use
  Company Number: CA-PFIZER INC-202400086285

PATIENT
  Age: 40 Year
  Sex: Male

DRUGS (3)
  1. ABRILADA [Suspect]
     Active Substance: ADALIMUMAB-AFZB
     Indication: Crohn^s disease
     Dosage: 40 MG, EVERY 2 WEEKS
     Route: 058
     Dates: start: 20230805
  2. DIAZEPAM [Concomitant]
     Active Substance: DIAZEPAM
     Dosage: 15 MG
  3. FENTANYL [Concomitant]
     Active Substance: FENTANYL\FENTANYL CITRATE
     Dosage: 150 UG

REACTIONS (3)
  - Ileocolectomy [Unknown]
  - Mucosal ulceration [Unknown]
  - Off label use [Unknown]
